FAERS Safety Report 4399847-X (Version None)
Quarter: 2004Q3

REPORT INFORMATION
  Report Type: 
  Country: None (occurrence: None)
  Receive Date: 20040714
  Receipt Date: 20030206
  Transmission Date: 20050211
  Serious: Yes (Death)
  Sender: FDA-Public Use
  Company Number: M2004-0849

PATIENT
  Age: 60 Year
  Sex: Male
  Weight: 65 kg

DRUGS (1)
  1. KETOPROFEN 50MG CAPSULE [Suspect]
     Dosage: 100 MG QD   1 DOSE
     Dates: start: 20030121

REACTIONS (2)
  - APNOEA [None]
  - DYSPNOEA EXACERBATED [None]
